FAERS Safety Report 9056368 (Version 1)
Quarter: 2013Q1

REPORT INFORMATION
  Report Type: Spontaneous
  Country: US (occurrence: US)
  Receive Date: 20130204
  Receipt Date: 20130204
  Transmission Date: 20140127
  Serious: No
  Sender: FDA-Public Use
  Company Number: US-ASTRAZENECA-2011SE37604

PATIENT
  Age: 52 Year
  Sex: Female

DRUGS (4)
  1. NEXIUM [Suspect]
     Route: 048
  2. ACIPHEX [Concomitant]
  3. RANITIDINE [Concomitant]
  4. DARVOCET [Concomitant]

REACTIONS (4)
  - Infection [Unknown]
  - Impaired healing [Unknown]
  - Gastrooesophageal reflux disease [Unknown]
  - Drug dose omission [Unknown]
